FAERS Safety Report 7381671-7 (Version None)
Quarter: 2011Q1

REPORT INFORMATION
  Report Type: 
  Country: None (occurrence: None)
  Receive Date: 20110329
  Receipt Date: 20110316
  Transmission Date: 20110831
  Serious: Yes (Death)
  Sender: FDA-Public Use
  Company Number: US-CELGENEUS-163-21880-11032088

PATIENT
  Sex: Male

DRUGS (9)
  1. ATENOLOL [Concomitant]
     Route: 065
  2. SPIRONOLACTONE [Concomitant]
     Route: 065
  3. REVLIMID [Suspect]
     Dosage: 10-15 MG
     Route: 048
     Dates: start: 20090301
  4. SYNTHROID [Concomitant]
     Route: 065
  5. REVLIMID [Suspect]
     Dosage: 5 MILLIGRAM
     Route: 048
     Dates: start: 20081101
  6. REVLIMID [Suspect]
     Dosage: 10 MILLIGRAM
     Route: 048
     Dates: start: 20100901
  7. LASIX [Concomitant]
     Route: 065
  8. CALCIUM [Concomitant]
     Indication: SUPPLEMENTATION THERAPY
     Route: 065
  9. REVLIMID [Suspect]
     Dosage: 5 MILLIGRAM
     Route: 048
     Dates: start: 20110101

REACTIONS (1)
  - DEATH [None]
